FAERS Safety Report 4772167-7 (Version None)
Quarter: 2005Q3

REPORT INFORMATION
  Report Type: 
  Country: None (occurrence: None)
  Receive Date: 20050919
  Receipt Date: 20040916
  Transmission Date: 20060218
  Serious: Yes (Hospitalization, Other)
  Sender: FDA-Public Use
  Company Number: US-BRISTOL-MYERS SQUIBB COMPANY-12706271

PATIENT
  Age: 40 Year
  Sex: Female
  Weight: 100 kg

DRUGS (6)
  1. DEFINITY [Suspect]
     Indication: STRESS ECHOCARDIOGRAM
     Route: 040
     Dates: start: 20040916, end: 20040916
  2. DOBUTAMINE HCL [Concomitant]
  3. LOTENSIN [Concomitant]
  4. HYDROCHLOROTHIAZIDE [Concomitant]
  5. TEGRIN [Concomitant]
  6. ESTRADIOL [Concomitant]

REACTIONS (4)
  - CHEST PAIN [None]
  - FEELING HOT [None]
  - PRURITUS [None]
  - URTICARIA [None]
